FAERS Safety Report 19786670 (Version 1)
Quarter: 2021Q3

REPORT INFORMATION
  Report Type: Spontaneous
  Country: CA (occurrence: CA)
  Receive Date: 20210903
  Receipt Date: 20210903
  Transmission Date: 20211014
  Serious: Yes (Hospitalization)
  Sender: FDA-Public Use
  Company Number: CA-TEVA-2021-CA-1947383

PATIENT
  Age: 56 Year
  Sex: Female

DRUGS (10)
  1. AVENTYL [Concomitant]
     Active Substance: NORTRIPTYLINE HYDROCHLORIDE
  2. DICETEL [Concomitant]
     Active Substance: PINAVERIUM BROMIDE
  3. GRASTOFIL SINGLE USE PRE?FILLED SYRINGE [Concomitant]
     Active Substance: FILGRASTIM
  4. VITAMIN B6 [Concomitant]
     Active Substance: PYRIDOXINE HYDROCHLORIDE
  5. NORVASC [Concomitant]
     Active Substance: AMLODIPINE BESYLATE
  6. CARBOPLATIN. [Suspect]
     Active Substance: CARBOPLATIN
     Route: 065
  7. TAXOL [Suspect]
     Active Substance: PACLITAXEL
     Route: 065
  8. CENTRUM ADVANTAGE [Concomitant]
     Active Substance: VITAMINS
  9. FLOVENT [Concomitant]
     Active Substance: FLUTICASONE PROPIONATE
  10. VENTOLIN [Concomitant]
     Active Substance: ALBUTEROL SULFATE
     Route: 055

REACTIONS (1)
  - Febrile neutropenia [Recovered/Resolved]
